FAERS Safety Report 9791418 (Version 2)
Quarter: 2014Q1

REPORT INFORMATION
  Report Type: Report from Study
  Country: US (occurrence: US)
  Receive Date: 20140101
  Receipt Date: 20140321
  Transmission Date: 20141002
  Serious: No
  Sender: FDA-Public Use
  Company Number: PHEH2013US026406

PATIENT
  Age: 66 Year
  Sex: Female

DRUGS (11)
  1. TASIGNA [Suspect]
     Indication: CHRONIC MYELOID LEUKAEMIA
     Dosage: 1 DF, BID
     Route: 048
     Dates: start: 20131119
  2. TASIGNA [Suspect]
     Dosage: 3 DF, DAILY
     Route: 048
  3. TASIGNA [Suspect]
     Dosage: 2 DF, DAILY
     Route: 048
  4. LEVOTHYROXIN [Concomitant]
     Indication: HYPOTHYROIDISM
     Dosage: 100 UG, QD
     Dates: start: 1998
  5. PRAVASTATIN [Concomitant]
     Indication: HYPERLIPIDAEMIA
     Dosage: 20 MG, QD
     Dates: start: 2012
  6. MULTI-VIT [Concomitant]
     Route: 048
  7. NATURE VITAMIN E [Concomitant]
     Route: 048
  8. NATURAL VITAMIN D [Concomitant]
  9. VITAMIN B COMPLEX [Concomitant]
  10. IBUPROFEN [Concomitant]
     Indication: OSTEOARTHRITIS
     Dosage: UNK UKN, UNK
     Dates: start: 2004
  11. COQ10 [Concomitant]
     Dosage: UNK UKN, DAILY
     Dates: start: 2013

REACTIONS (11)
  - Abdominal pain [Not Recovered/Not Resolved]
  - Abdominal distension [Not Recovered/Not Resolved]
  - Flatulence [Not Recovered/Not Resolved]
  - Abasia [Recovered/Resolved]
  - Bowel movement irregularity [Unknown]
  - Dyspnoea [Recovered/Resolved]
  - Heart rate increased [Recovered/Resolved]
  - Chest discomfort [Recovered/Resolved]
  - Fatigue [Recovered/Resolved]
  - Pain [Recovered/Resolved]
  - Oropharyngeal pain [Recovered/Resolved]
